FAERS Safety Report 17354972 (Version 1)
Quarter: 2020Q1

REPORT INFORMATION
  Report Type: Report from Study
  Country: DK (occurrence: DK)
  Receive Date: 20200131
  Receipt Date: 20200131
  Transmission Date: 20200409
  Serious: Yes (Hospitalization, Other)
  Sender: FDA-Public Use
  Company Number: DK-ASPEN-GLO2020DK000644

PATIENT
  Age: 74 Year
  Sex: Male
  Weight: 73 kg

DRUGS (27)
  1. METFORMIN [Concomitant]
     Active Substance: METFORMIN HYDROCHLORIDE
     Indication: TYPE 2 DIABETES MELLITUS
     Dosage: 1000 MG, BID
     Route: 048
  2. METOPROLOL. [Concomitant]
     Active Substance: METOPROLOL
     Indication: HYPERTENSION
     Dosage: 50 MG, QD
     Route: 048
     Dates: start: 20160920
  3. MORPHINE [Concomitant]
     Active Substance: MORPHINE
     Dosage: 10 MG, PRN
     Route: 048
     Dates: start: 20190807
  4. NATRIUMCHLORIDE [Concomitant]
     Active Substance: SODIUM CHLORIDE
     Indication: FLUID REPLACEMENT
     Dosage: 9 MG, PRN
     Route: 042
     Dates: start: 20190724
  5. SIMVASTATIN. [Concomitant]
     Active Substance: SIMVASTATIN
     Indication: PROPHYLAXIS
     Dosage: 40 MG, QD
     Route: 048
  6. PARACETAMOL [Concomitant]
     Active Substance: ACETAMINOPHEN
     Indication: PAIN
     Dosage: 1330 MG, TID
     Route: 048
     Dates: start: 20180122
  7. ACETYLSALISYLSYRE [Concomitant]
     Indication: THROMBOSIS PROPHYLAXIS
     Dosage: 75 MG, QD
     Route: 048
  8. MOXONIDINE [Concomitant]
     Active Substance: MOXONIDINE
     Indication: HYPERTENSION
     Dosage: 0.2 MG, QD
     Route: 048
     Dates: start: 20170314, end: 20171014
  9. FERROFUMARAT [Concomitant]
     Indication: IRON DEFICIENCY ANAEMIA
     Dosage: 1 DF, QD
     Route: 048
     Dates: start: 20190806
  10. ARANESP [Concomitant]
     Active Substance: DARBEPOETIN ALFA
     Indication: ANAEMIA
     Dosage: 150 MG WEEKLY
     Route: 058
     Dates: start: 20190919, end: 20191126
  11. METHADONE [Concomitant]
     Active Substance: METHADONE HYDROCHLORIDE
     Indication: PAIN
     Dosage: 0.5 DF, TID
     Route: 048
     Dates: start: 20190807
  12. NOVOMIX [Concomitant]
     Active Substance: INSULIN ASPART
     Indication: DIABETES MELLITUS
     Dosage: 8 IU, BID
     Route: 058
     Dates: start: 20170818
  13. ENALAPRIL [Concomitant]
     Active Substance: ENALAPRIL
     Indication: HYPERTENSION
     Dosage: 20 MG, QD
     Route: 048
     Dates: start: 20190729
  14. PARACETAMOL [Concomitant]
     Active Substance: ACETAMINOPHEN
     Indication: HYPERTHERMIA MALIGNANT
     Dosage: 500 MG, QID
     Route: 048
     Dates: start: 20190807
  15. NATRIUMPICOSULFAT [Concomitant]
     Indication: CONSTIPATION
     Dosage: QD
     Route: 048
     Dates: start: 20190928, end: 20191014
  16. HYDROCHLORTHIAZID [Concomitant]
     Active Substance: HYDROCHLOROTHIAZIDE
     Indication: PRODUCT USED FOR UNKNOWN INDICATION
     Route: 065
  17. GANFORT [Concomitant]
     Active Substance: BIMATOPROST\TIMOLOL
     Indication: PROPHYLAXIS
     Dosage: 1 DF, QD
     Route: 047
  18. FUROSEMIDE. [Concomitant]
     Active Substance: FUROSEMIDE
     Indication: HYPERTENSION
     Dosage: 30 MG, QD
     Route: 048
     Dates: start: 20170217
  19. MAXIDEX [Concomitant]
     Active Substance: DEXAMETHASONE
     Indication: HYPERTHERMIA MALIGNANT
     Dosage: 1 DF, BID
     Route: 047
     Dates: start: 20180622
  20. PHENOXYMETHYLPENICILLIN [Concomitant]
     Active Substance: PENICILLIN V
     Indication: INFECTION
     Dosage: 1000000 IU, QID
     Route: 048
     Dates: start: 20190807, end: 20190903
  21. CHLORAMBUCIL [Suspect]
     Active Substance: CHLORAMBUCIL
     Indication: CHRONIC LYMPHOCYTIC LEUKAEMIA
     Dosage: 0.5 MG/KG, 1 DOSE 2 WEEKS
     Route: 048
     Dates: start: 20150922, end: 20160815
  22. GA101 [Suspect]
     Active Substance: OBINUTUZUMAB
     Indication: CHRONIC LYMPHOCYTIC LEUKAEMIA
     Dosage: 100 MG EVERY 4 WEEKS
     Route: 042
     Dates: start: 20150922, end: 20160209
  23. COLECALCIFEROL [Concomitant]
     Active Substance: CHOLECALCIFEROL
     Indication: VITAMIN SUPPLEMENTATION
     Dosage: 1 DF, QD
     Route: 048
     Dates: start: 20170119
  24. NOVORAPID [Concomitant]
     Active Substance: INSULIN ASPART
     Indication: DIABETES MELLITUS
     Dosage: 4-8, PRN
     Route: 058
     Dates: start: 20190722, end: 20191014
  25. DORZOLAMIDE [Concomitant]
     Active Substance: DORZOLAMIDE
     Indication: GLAUCOMA
     Dosage: 1 DF, BID
     Route: 047
     Dates: start: 20160331
  26. MORPHINE [Concomitant]
     Active Substance: MORPHINE
     Indication: PAIN
     Dosage: 60 MG, BID
     Route: 048
     Dates: start: 20190802
  27. METOCLOPRAMIDE. [Concomitant]
     Active Substance: METOCLOPRAMIDE
     Indication: NAUSEA
     Dosage: 10 MG, TID
     Route: 048
     Dates: start: 20190801

REACTIONS (1)
  - Staphylococcal infection [Recovered/Resolved]

NARRATIVE: CASE EVENT DATE: 20190928
